FAERS Safety Report 4939244-9 (Version None)
Quarter: 2006Q1

REPORT INFORMATION
  Report Type: 
  Country: None (occurrence: None)
  Receive Date: 20060306
  Receipt Date: 20060214
  Transmission Date: 20060701
  Serious: Yes (Death)
  Sender: FDA-Public Use
  Company Number: 2006-00357

PATIENT
  Age: 77 Year

DRUGS (3)
  1. VELCADE [Suspect]
     Indication: MULTIPLE MYELOMA
     Dates: start: 20040312, end: 20040518
  2. DEXAMETHASONE TAB [Concomitant]
  3. BISPHOSPHONATES [Concomitant]

REACTIONS (3)
  - ASTHENIA [None]
  - DEMENTIA [None]
  - PNEUMONIA [None]
